FAERS Safety Report 14148590 (Version 1)
Quarter: 2017Q4

REPORT INFORMATION
  Report Type: Spontaneous
  Country: US (occurrence: US)
  Receive Date: 20171031
  Receipt Date: 20171031
  Transmission Date: 20180321
  Serious: Yes (Other)
  Sender: FDA-Public Use
  Company Number: None

PATIENT
  Age: 53 Year
  Sex: Female
  Weight: 47.25 kg

DRUGS (14)
  1. KETTOPHIN [Concomitant]
  2. TESTOSTERONE CREAM [Concomitant]
     Active Substance: TESTOSTERONE
  3. ALLEGRA [Concomitant]
     Active Substance: FEXOFENADINE HYDROCHLORIDE
  4. UCERIS [Concomitant]
     Active Substance: BUDESONIDE
  5. NALTREXONE [Concomitant]
     Active Substance: NALTREXONE
  6. PROGESTRON CREAM [Concomitant]
  7. SODIUM CROMYLIN [Suspect]
     Active Substance: CROMOLYN SODIUM
     Indication: PRODUCT USED FOR UNKNOWN INDICATION
     Route: 048
     Dates: start: 20170130, end: 20170330
  8. LIOTHYRONINE [Concomitant]
     Active Substance: LIOTHYRONINE
  9. ALLEGRA [Suspect]
     Active Substance: FEXOFENADINE HYDROCHLORIDE
     Indication: HYPERSENSITIVITY
     Route: 048
     Dates: start: 20170101, end: 20170330
  10. ASACOL [Concomitant]
     Active Substance: MESALAMINE
  11. SODIUM CROMYLIN [Concomitant]
  12. TRANSILAST [Concomitant]
  13. VITAMIN [Concomitant]
     Active Substance: VITAMINS
  14. B VITAMINS [Concomitant]
     Active Substance: CYANOCOBALAMIN\DEXPANTHENOL\NIACINAMIDE\PYRIDOXINE HYDROCHLORIDE\RIBOFLAVIN 5^-PHOSPHATE SODIUM\THIAMINE HYDROCHLORIDE\VITAMIN B COMPLEX

REACTIONS (3)
  - Product container issue [None]
  - Product colour issue [None]
  - Product formulation issue [None]

NARRATIVE: CASE EVENT DATE: 20170301
